FAERS Safety Report 6345134-X (Version None)
Quarter: 2009Q3

REPORT INFORMATION
  Report Type: 
  Country: None (occurrence: None)
  Receive Date: 20090909
  Receipt Date: 20070920
  Transmission Date: 20100115
  Serious: Yes (Hospitalization, Other)
  Sender: FDA-Public Use
  Company Number: US-ASTRAZENECA-2007UW18952

PATIENT
  Age: 15524 Day
  Sex: Female
  Weight: 81.6 kg

DRUGS (8)
  1. SEROQUEL [Suspect]
     Indication: DEPRESSION
     Route: 048
     Dates: start: 20011209, end: 20030806
  2. ZYPREXA [Concomitant]
     Indication: DEPRESSION
     Dates: start: 19960315
  3. SERTRALINE HCL/ SERTRALINE/ ZOLOFT [Concomitant]
     Dosage: 501 MG QD - 150 MG QD
     Dates: start: 19991116
  4. PERCOCET [Concomitant]
     Dosage: 7.5 - 325 MG EVERY 4-6 HRS
     Route: 048
     Dates: start: 20060105
  5. PANCREASE [Concomitant]
     Dosage: 20/45/25 TID
     Dates: start: 20030729
  6. INSULIN REGULAR HUMAN/INSULIN [Concomitant]
     Dosage: 30 UNITS AM, 30 UNITS PM- 100 UNITS/ ML SOLUTION FOUR TIMES A DAY, DOSE ACCORDING TO SLIDING SCALE
     Dates: start: 19991116
  7. LANTUS [Concomitant]
     Dosage: 24 UNITS PER NIGHT, 100 UNITS/ ML SOLUTION AT BEDTIME
     Route: 058
     Dates: start: 20060105
  8. NPH INSULIN [Concomitant]
     Dosage: 10 UNITS - 30 UNITS
     Dates: start: 20030729

REACTIONS (7)
  - DIABETES MELLITUS [None]
  - DIABETES MELLITUS INADEQUATE CONTROL [None]
  - DIABETIC COMPLICATION [None]
  - DIABETIC KETOACIDOSIS [None]
  - PANCREATITIS [None]
  - PANCREATITIS ACUTE [None]
  - TYPE 2 DIABETES MELLITUS [None]
